FAERS Safety Report 23232548 (Version 1)
Quarter: 2023Q4

REPORT INFORMATION
  Report Type: Report from Study
  Country: US (occurrence: None)
  Receive Date: 20231128
  Receipt Date: 20231128
  Transmission Date: 20240109
  Serious: Yes (Other)
  Sender: FDA-Public Use
  Company Number: US-ROCHE-3461049

PATIENT
  Sex: Female

DRUGS (1)
  1. FARICIMAB [Suspect]
     Active Substance: FARICIMAB
     Indication: Diabetic retinopathy
     Route: 065

REACTIONS (9)
  - Uveitis [Unknown]
  - Vasculitis [Unknown]
  - Ocular vascular disorder [Unknown]
  - Eye disorder [Unknown]
  - Anterior chamber cell [Unknown]
  - Vitreal cells [Unknown]
  - Periphlebitis [Unknown]
  - Optic disc disorder [Unknown]
  - Keratic precipitates [Unknown]
